FAERS Safety Report 21899993 (Version 1)
Quarter: 2023Q1

REPORT INFORMATION
  Report Type: Spontaneous
  Country: US (occurrence: None)
  Receive Date: 20230123
  Receipt Date: 20230123
  Transmission Date: 20230417
  Serious: No
  Sender: FDA-Public Use
  Company Number: None

PATIENT
  Age: 57 Year
  Sex: Male

DRUGS (1)
  1. HYDROCORTISONE\NEOMYCIN\POLYMYXIN [Suspect]
     Active Substance: HYDROCORTISONE\NEOMYCIN\POLYMYXIN
     Indication: Otitis media

REACTIONS (1)
  - Drug ineffective [None]

NARRATIVE: CASE EVENT DATE: 20230123
